FAERS Safety Report 9423062 (Version 3)
Quarter: 2013Q3

REPORT INFORMATION
  Report Type: Spontaneous
  Country: JP (occurrence: JP)
  Receive Date: 20130726
  Receipt Date: 20130816
  Transmission Date: 20140515
  Serious: Yes (Death)
  Sender: FDA-Public Use
  Company Number: JP-GLAXOSMITHKLINE-B0908356A

PATIENT
  Age: 59 Year
  Sex: Female
  Weight: 41 kg

DRUGS (6)
  1. TYKERB [Suspect]
     Indication: BREAST CANCER
     Dosage: 1250MG PER DAY
     Route: 048
     Dates: start: 20130701, end: 20130705
  2. XELODA [Suspect]
     Indication: BREAST CANCER
     Dosage: 1200MG TWICE PER DAY
     Route: 048
     Dates: start: 20130701, end: 20130705
  3. TAKEPRON [Concomitant]
     Route: 048
  4. EXCEGRAN [Concomitant]
     Route: 048
  5. RINDERON [Concomitant]
     Route: 065
  6. MAGMITT [Concomitant]
     Route: 048

REACTIONS (6)
  - Drug-induced liver injury [Fatal]
  - Diarrhoea [Recovering/Resolving]
  - Jaundice [Fatal]
  - Depressed level of consciousness [Fatal]
  - Respiratory arrest [Fatal]
  - Diarrhoea [Recovering/Resolving]
